FAERS Safety Report 25310276 (Version 1)
Quarter: 2025Q2

REPORT INFORMATION
  Report Type: Spontaneous
  Country: CO (occurrence: CO)
  Receive Date: 20250514
  Receipt Date: 20250514
  Transmission Date: 20250716
  Serious: Yes (Life-Threatening, Hospitalization, Other)
  Sender: CHEPLAPHARM
  Company Number: CO-ROCHE-10000273447

PATIENT
  Age: 49 Year
  Sex: Female

DRUGS (65)
  1. CAPECITABINE [Suspect]
     Active Substance: CAPECITABINE
     Indication: Breast cancer
     Dates: start: 20240709
  2. CAPECITABINE [Suspect]
     Active Substance: CAPECITABINE
     Indication: Breast cancer
     Dates: start: 20240824
  3. CAPECITABINE [Suspect]
     Active Substance: CAPECITABINE
     Indication: Breast cancer
     Route: 042
  4. TRASTUZUMAB [Suspect]
     Active Substance: TRASTUZUMAB
     Indication: Breast cancer
     Dosage: ONCE EVERY 3 WEEKS/, ON 26 AUG 2024, RECIEVED THE MOST RECENT DOSE
     Route: 042
     Dates: start: 20231030
  5. TRASTUZUMAB [Suspect]
     Active Substance: TRASTUZUMAB
     Indication: Breast cancer
     Route: 042
     Dates: start: 20240709
  6. TRASTUZUMAB [Suspect]
     Active Substance: TRASTUZUMAB
     Indication: Breast cancer
     Route: 042
     Dates: start: 20240826
  7. TRASTUZUMAB [Suspect]
     Active Substance: TRASTUZUMAB
     Indication: Breast cancer
     Route: 042
  8. PERTUZUMAB [Suspect]
     Active Substance: PERTUZUMAB
     Indication: Breast cancer
     Dosage: ONCE EVERY 3 WEEKS
     Route: 042
     Dates: start: 20231030
  9. DOCETAXEL [Suspect]
     Active Substance: DOCETAXEL
     Indication: Breast cancer
     Dosage: ONCE EVERY 3 WEEKS
     Route: 042
     Dates: start: 20231030
  10. ACETAMINOPHEN [Concomitant]
     Active Substance: ACETAMINOPHEN
     Indication: Pain
     Route: 048
     Dates: start: 20211201, end: 20211230
  11. ACETAMINOPHEN [Concomitant]
     Active Substance: ACETAMINOPHEN
     Indication: Pain
     Route: 048
     Dates: start: 20231215, end: 20231228
  12. ACETAMINOPHEN [Concomitant]
     Active Substance: ACETAMINOPHEN
     Indication: Pain
     Route: 048
     Dates: start: 20240831
  13. AMLODIPINE [Concomitant]
     Active Substance: AMLODIPINE BESYLATE
     Dosage: DAILY DOSE: 5 MILLIGRAM
     Route: 048
     Dates: start: 20231215, end: 20231217
  14. AMLODIPINE [Concomitant]
     Active Substance: AMLODIPINE BESYLATE
     Dosage: DAILY DOSE: 5 MILLIGRAM
     Route: 048
     Dates: start: 20231218, end: 20231228
  15. CALCIUM CARBONATE [Concomitant]
     Active Substance: CALCIUM CARBONATE
     Indication: Hypocalcaemia
     Dosage: DAILY DOSE: 600 MILLIGRAM
     Route: 048
     Dates: start: 20240908, end: 20240915
  16. COLCHICINE [Concomitant]
     Active Substance: COLCHICINE
     Route: 048
     Dates: start: 20240118
  17. CYANOCOBALAMIN [Concomitant]
     Active Substance: CYANOCOBALAMIN
     Route: 042
     Dates: start: 20211210, end: 20211216
  18. DEXAMETHASONE [Concomitant]
     Active Substance: DEXAMETHASONE
     Indication: Pain
     Route: 030
     Dates: start: 20211201, end: 20211201
  19. DICLOFENAC [Concomitant]
     Active Substance: DICLOFENAC
     Indication: Pain
     Route: 014
     Dates: start: 20211201, end: 20211201
  20. DICLOFENAC [Concomitant]
     Active Substance: DICLOFENAC
     Indication: Pain
     Route: 048
     Dates: start: 20211210, end: 20211215
  21. Diosmectit [Concomitant]
     Route: 048
     Dates: start: 20240908, end: 20240914
  22. DIPYRONE [Concomitant]
     Active Substance: DIPYRONE
     Indication: Pain
     Route: 042
     Dates: start: 20211203, end: 20211203
  23. DIPYRONE [Concomitant]
     Active Substance: DIPYRONE
     Indication: Pain
     Route: 042
     Dates: start: 20231215, end: 20231221
  24. DIPYRONE [Concomitant]
     Active Substance: DIPYRONE
     Indication: Pain
     Route: 042
     Dates: start: 20231222, end: 20231222
  25. ENOXAPARIN [Concomitant]
     Active Substance: ENOXAPARIN
     Dosage: DAILY DOSE: 40 MILLIGRAM
     Route: 058
     Dates: start: 20231215
  26. ENOXAPARIN [Concomitant]
     Active Substance: ENOXAPARIN
     Dosage: DAILY DOSE: 40 MILLIGRAM
     Route: 058
     Dates: start: 20240120
  27. FUROSEMIDE [Concomitant]
     Active Substance: FUROSEMIDE
     Route: 042
     Dates: start: 20231215, end: 20231215
  28. FUROSEMIDE [Concomitant]
     Active Substance: FUROSEMIDE
     Route: 042
     Dates: start: 20231215, end: 20231217
  29. FUROSEMIDE [Concomitant]
     Active Substance: FUROSEMIDE
     Route: 042
     Dates: start: 20231216, end: 20231216
  30. FUROSEMIDE [Concomitant]
     Active Substance: FUROSEMIDE
     Dosage: DAILY DOSE: 40 MILLIGRAM
     Route: 048
     Dates: start: 20231228
  31. HYDROCORTISONE [Concomitant]
     Active Substance: HYDROCORTISONE
     Indication: Cough
     Route: 042
     Dates: start: 20240120
  32. SCOPOLAMINE [Concomitant]
     Active Substance: SCOPOLAMINE
     Route: 042
     Dates: start: 20240902, end: 20240915
  33. IPRATROPIUM [Concomitant]
     Active Substance: IPRATROPIUM
     Indication: Cough
     Route: 055
     Dates: start: 20240120
  34. LACTULOSE [Concomitant]
     Active Substance: LACTULOSE
     Indication: Constipation
     Route: 048
     Dates: start: 20231222, end: 20231228
  35. LOPERAMIDE [Concomitant]
     Active Substance: LOPERAMIDE
     Route: 048
     Dates: start: 20240911, end: 20240914
  36. LOSARTAN [Concomitant]
     Active Substance: LOSARTAN
     Route: 048
     Dates: start: 20231215, end: 20231215
  37. LOSARTAN [Concomitant]
     Active Substance: LOSARTAN
     Route: 048
     Dates: start: 20231216, end: 20231216
  38. LOSARTAN [Concomitant]
     Active Substance: LOSARTAN
     Route: 048
     Dates: start: 20231218, end: 20231228
  39. METOCLOPRAMIDE [Concomitant]
     Active Substance: METOCLOPRAMIDE
     Indication: Pain
     Route: 042
     Dates: start: 20231222, end: 20231228
  40. MORPHINE [Concomitant]
     Active Substance: MORPHINE
     Indication: Pain
     Route: 042
     Dates: start: 20231223, end: 20231228
  41. MORPHINE [Concomitant]
     Active Substance: MORPHINE
     Indication: Pain
     Route: 042
     Dates: start: 20240117, end: 20240117
  42. MORPHINE [Concomitant]
     Active Substance: MORPHINE
     Indication: Pain
     Route: 042
     Dates: start: 20240119
  43. MORPHINE [Concomitant]
     Active Substance: MORPHINE
     Indication: Pain
     Route: 042
     Dates: start: 20240831, end: 20240915
  44. OMEPRAZOLE [Concomitant]
     Active Substance: OMEPRAZOLE
     Route: 042
     Dates: start: 20231215, end: 20231215
  45. OMEPRAZOLE [Concomitant]
     Active Substance: OMEPRAZOLE
     Route: 048
     Dates: start: 20240831, end: 20240901
  46. OMEPRAZOLE [Concomitant]
     Active Substance: OMEPRAZOLE
     Route: 048
     Dates: start: 20240904
  47. ONDANSETRON [Concomitant]
     Active Substance: ONDANSETRON
     Indication: Pain
     Route: 042
     Dates: start: 20231222, end: 20231228
  48. ONDANSETRON [Concomitant]
     Active Substance: ONDANSETRON
     Indication: Nausea
     Route: 042
     Dates: start: 20231222, end: 20231228
  49. ONDANSETRON [Concomitant]
     Active Substance: ONDANSETRON
     Indication: Pain
     Route: 042
     Dates: start: 20240831, end: 20240915
  50. ONDANSETRON [Concomitant]
     Active Substance: ONDANSETRON
     Indication: Nausea
     Route: 042
     Dates: start: 20240831, end: 20240915
  51. Piperacilin [Concomitant]
     Indication: Pyrexia
     Route: 042
     Dates: start: 20231222, end: 20231225
  52. Piperacilin [Concomitant]
     Indication: Pyrexia
     Route: 042
     Dates: start: 20231226, end: 20231228
  53. Piperacilin [Concomitant]
     Indication: Pyrexia
     Route: 042
     Dates: start: 20240906, end: 20240914
  54. HIGH DENSITY POLYETHYLENE [Concomitant]
     Active Substance: HIGH DENSITY POLYETHYLENE
     Indication: Constipation
     Dosage: DAILY DOSE: 17 GRAM
     Route: 048
     Dates: start: 20231225, end: 20231228
  55. POTASSIUM [Concomitant]
     Active Substance: POTASSIUM
     Indication: Hypokalaemia
     Route: 042
     Dates: start: 20231217, end: 20231217
  56. POTASSIUM [Concomitant]
     Active Substance: POTASSIUM
     Indication: Hypokalaemia
     Route: 042
     Dates: start: 20231217, end: 20231221
  57. POTASSIUM [Concomitant]
     Active Substance: POTASSIUM
     Indication: Hypokalaemia
     Route: 042
     Dates: start: 20240907, end: 20240912
  58. POTASSIUM [Concomitant]
     Active Substance: POTASSIUM
     Indication: Hypokalaemia
     Route: 048
     Dates: start: 20240912, end: 20240914
  59. PREGABALIN [Concomitant]
     Active Substance: PREGABALIN
     Indication: Pain
     Dosage: DAILY DOSE: 25 MILLIGRAM
     Route: 048
     Dates: start: 20231223, end: 20231228
  60. PREGABALIN [Concomitant]
     Active Substance: PREGABALIN
     Indication: Pain
     Dosage: DAILY DOSE: 50 MILLIGRAM
     Route: 048
     Dates: start: 20231223, end: 20231228
  61. PREGABALIN [Concomitant]
     Active Substance: PREGABALIN
     Indication: Pain
     Dosage: DAILY DOSE: 75 MILLIGRAM
     Route: 048
     Dates: start: 20240417, end: 20240830
  62. SERTRALINE [Concomitant]
     Active Substance: SERTRALINE HYDROCHLORIDE
     Indication: Major depression
     Dosage: DAILY DOSE: 50 MILLIGRAM
     Route: 048
     Dates: start: 202112
  63. TRAZODONE [Concomitant]
     Active Substance: TRAZODONE HYDROCHLORIDE
     Dosage: DAILY DOSE: 50 MILLIGRAM
     Route: 048
     Dates: start: 2022
  64. Ureaderm [Concomitant]
     Route: 061
     Dates: start: 20240911
  65. VALSARTAN [Concomitant]
     Active Substance: VALSARTAN
     Indication: Hypertension
     Route: 048
     Dates: start: 20240912

REACTIONS (13)
  - Pericardial effusion [Recovered/Resolved]
  - Pericardial effusion [Recovered/Resolved]
  - Pleural effusion [Recovered/Resolved]
  - Pleural effusion [Recovered/Resolved]
  - Hypertension [Recovered/Resolved]
  - Anaemia [Recovered/Resolved]
  - Enterocolitis infectious [Recovered/Resolved]
  - Palmar-plantar erythrodysaesthesia syndrome [Recovering/Resolving]
  - Enterocolitis [Recovered/Resolved]
  - Hypokalaemia [Recovered/Resolved]
  - Neutropenia [Recovered/Resolved]
  - Aspartate aminotransferase increased [Recovered/Resolved]
  - Malaise [Unknown]

NARRATIVE: CASE EVENT DATE: 20231215
